FAERS Safety Report 9575228 (Version 2)
Quarter: 2013Q4

REPORT INFORMATION
  Report Type: Spontaneous
  Country: US (occurrence: US)
  Receive Date: 20131001
  Receipt Date: 20131017
  Transmission Date: 20140711
  Serious: Yes (Death)
  Sender: FDA-Public Use
  Company Number: US-GLAXOSMITHKLINE-A1043358A

PATIENT
  Age: 59 Year
  Sex: Female

DRUGS (12)
  1. TYKERB [Suspect]
     Indication: BREAST CANCER
     Dosage: 1250MG PER DAY
     Route: 048
     Dates: start: 20110112
  2. PROTONIX [Concomitant]
  3. COZAAR [Concomitant]
  4. METFORMIN [Concomitant]
  5. ACTOS [Concomitant]
  6. JANUVIA [Concomitant]
  7. GLIMEPIRIDE [Concomitant]
  8. DEXAMETHASONE [Concomitant]
  9. ZOLOFT [Concomitant]
  10. LYRICA [Concomitant]
  11. DILANTIN [Concomitant]
  12. NAMENDA [Concomitant]

REACTIONS (1)
  - Disease progression [Fatal]
